FAERS Safety Report 8215050-7 (Version None)
Quarter: 2012Q1

REPORT INFORMATION
  Report Type: 
  Country: None (occurrence: None)
  Receive Date: 20120316
  Receipt Date: 20120312
  Transmission Date: 20120608
  Serious: Yes (Hospitalization)
  Sender: FDA-Public Use
  Company Number: US-BAYER-2012-024374

PATIENT
  Age: 87 Year
  Sex: Female
  Weight: 59 kg

DRUGS (2)
  1. SYNTHROID [Concomitant]
  2. ASPIRIN [Suspect]
     Indication: HEADACHE

REACTIONS (2)
  - GASTRITIS EROSIVE [None]
  - GASTRIC HAEMORRHAGE [None]
